FAERS Safety Report 4885610-X (Version None)
Quarter: 2005Q4

REPORT INFORMATION
  Report Type: 
  Country: None (occurrence: None)
  Receive Date: 20051220
  Receipt Date: 20041201
  Transmission Date: 20060501
  Serious: Yes (Hospitalization, Other)
  Sender: FDA-Public Use
  Company Number: HQWYE738302DEC04

PATIENT
  Age: 37 Year
  Sex: Female
  Weight: 72.64 kg

DRUGS (8)
  1. EFFEXOR XR [Suspect]
     Indication: DEPRESSION
     Dosage: 37.5 MG 1X PER 1 DAY, ORAL; SEE IMAGE
     Route: 048
     Dates: start: 20040803, end: 20040801
  2. EFFEXOR XR [Suspect]
     Indication: DEPRESSION
     Dosage: 37.5 MG 1X PER 1 DAY, ORAL; SEE IMAGE
     Route: 048
     Dates: start: 20040816, end: 20040801
  3. EFFEXOR XR [Suspect]
     Indication: DEPRESSION
     Dosage: 37.5 MG 1X PER 1 DAY, ORAL; SEE IMAGE
     Route: 048
     Dates: start: 20040727, end: 20040802
  4. EFFEXOR XR [Suspect]
     Indication: DEPRESSION
     Dosage: 37.5 MG 1X PER 1 DAY, ORAL; SEE IMAGE
     Route: 048
     Dates: start: 20040801, end: 20040815
  5. LEXAPRO [Concomitant]
  6. ASPIRIN [Concomitant]
  7. WELLBUTRIN [Concomitant]
  8. NICOTINE [Concomitant]

REACTIONS (3)
  - HEADACHE [None]
  - SINUS ARRHYTHMIA [None]
  - VAGINAL HAEMORRHAGE [None]
